FAERS Safety Report 18072827 (Version 1)
Quarter: 2020Q3

REPORT INFORMATION
  Report Type: Spontaneous
  Country: GB (occurrence: GB)
  Receive Date: 20200727
  Receipt Date: 20200727
  Transmission Date: 20201103
  Serious: Yes (Disabling)
  Sender: FDA-Public Use
  Company Number: NVSC2020GB201527

PATIENT
  Age: 27 Year
  Sex: Female
  Weight: 44.45 kg

DRUGS (1)
  1. METRONIDAZOLE. [Suspect]
     Active Substance: METRONIDAZOLE
     Indication: SWELLING FACE
     Dosage: 1 DF, QD (FOR ABOUT A WEEK)
     Route: 048
     Dates: start: 199701

REACTIONS (10)
  - Cognitive disorder [Recovered/Resolved with Sequelae]
  - Insomnia [Recovered/Resolved with Sequelae]
  - Dysgeusia [Recovered/Resolved with Sequelae]
  - Nausea [Recovered/Resolved with Sequelae]
  - Confusional state [Recovered/Resolved with Sequelae]
  - Seizure [Recovered/Resolved with Sequelae]
  - Depression [Recovered/Resolved with Sequelae]
  - Abnormal loss of weight [Recovered/Resolved with Sequelae]
  - Chromaturia [Recovered/Resolved with Sequelae]
  - Trichoglossia [Recovered/Resolved with Sequelae]

NARRATIVE: CASE EVENT DATE: 19970117
